FAERS Safety Report 20896929 (Version 1)
Quarter: 2022Q2

REPORT INFORMATION
  Report Type: Report from Study
  Country: US (occurrence: US)
  Receive Date: 20220531
  Receipt Date: 20220531
  Transmission Date: 20220721
  Serious: Yes (Other)
  Sender: FDA-Public Use
  Company Number: US-OTSUKA-2022_027807

PATIENT
  Sex: Female
  Weight: 86 kg

DRUGS (1)
  1. CEDAZURIDINE\DECITABINE [Suspect]
     Active Substance: CEDAZURIDINE\DECITABINE
     Indication: Myelodysplastic syndrome
     Dosage: 1 DF, QD (1-5 DAY) OF EACH 28-DAY CYCLE
     Route: 048
     Dates: start: 20220511

REACTIONS (13)
  - Thrombosis [Unknown]
  - Cellulitis [Unknown]
  - Haemoglobin decreased [Unknown]
  - Platelet count decreased [Unknown]
  - Blood potassium decreased [Unknown]
  - Skin mass [Unknown]
  - Peripheral swelling [Unknown]
  - Contusion [Unknown]
  - Petechiae [Unknown]
  - Vulvovaginal mycotic infection [Unknown]
  - Nausea [Unknown]
  - Decreased appetite [Unknown]
  - Diarrhoea [Unknown]
